FAERS Safety Report 5550099-4 (Version None)
Quarter: 2007Q4

REPORT INFORMATION
  Report Type: 
  Country: None (occurrence: None)
  Receive Date: 20071212
  Receipt Date: 20041201
  Transmission Date: 20080405
  Serious: Yes (Other)
  Sender: FDA-Public Use
  Company Number: FR-JNJFOC-20071105430

PATIENT
  Age: 38 Year
  Sex: Female
  Weight: 65 kg

DRUGS (3)
  1. HALOPERIDOL [Suspect]
     Indication: MENTAL RETARDATION SEVERITY UNSPECIFIED
     Route: 048
  2. HALOPERIDOL [Suspect]
     Indication: SCHIZOPHRENIA
     Dosage: TOTAL DAILY DOSE: 150MG.
     Route: 048
  3. ORAL CONTRACEPTIVES [Concomitant]
     Route: 048

REACTIONS (1)
  - WEIGHT INCREASED [None]
